FAERS Safety Report 20336750 (Version 1)
Quarter: 2022Q1

REPORT INFORMATION
  Report Type: Spontaneous
  Country: US (occurrence: None)
  Receive Date: 20220114
  Receipt Date: 20220114
  Transmission Date: 20220423
  Serious: Yes (Other)
  Sender: FDA-Public Use
  Company Number: US-ROCHE-2997068

PATIENT
  Sex: Female

DRUGS (2)
  1. GAZYVA [Suspect]
     Active Substance: OBINUTUZUMAB
     Indication: Chronic lymphocytic leukaemia
     Route: 042
     Dates: start: 20220104
  2. GAZYVA [Suspect]
     Active Substance: OBINUTUZUMAB
     Route: 041
     Dates: start: 20220105

REACTIONS (1)
  - Cytopenia [Not Recovered/Not Resolved]

NARRATIVE: CASE EVENT DATE: 20220105
